FAERS Safety Report 7177124-1 (Version None)
Quarter: 2010Q4

REPORT INFORMATION
  Report Type: 
  Country: None (occurrence: None)
  Receive Date: 20101215
  Receipt Date: 20101215
  Transmission Date: 20110411
  Serious: Yes (Other)
  Sender: FDA-Public Use
  Company Number: None

PATIENT
  Age: 68 Year
  Sex: Male

DRUGS (1)
  1. PROAIR HFA [Suspect]
     Indication: ASTHMA
     Dosage: INHALES 2 PUFFS EVERY 6 HOURS AS NEEDED FOR WHEEZING
     Route: 055
     Dates: start: 20050101

REACTIONS (1)
  - PRODUCT QUALITY ISSUE [None]
